FAERS Safety Report 4643528-1 (Version None)
Quarter: 2005Q2

REPORT INFORMATION
  Report Type: 
  Country: None (occurrence: None)
  Receive Date: 20050425
  Receipt Date: 20050413
  Transmission Date: 20051028
  Serious: Yes (Hospitalization)
  Sender: FDA-Public Use
  Company Number: US-JNJFOC-20040909894

PATIENT
  Sex: Female
  Weight: 54.43 kg

DRUGS (16)
  1. REMICADE [Suspect]
     Indication: RHEUMATOID ARTHRITIS
     Route: 042
     Dates: start: 20020101
  2. PREMARIN [Concomitant]
  3. LEVOXYL [Concomitant]
  4. BEXTRA [Concomitant]
  5. NORVASC [Concomitant]
  6. METHOTREXATE [Concomitant]
  7. LOTENSIN [Concomitant]
  8. HYDROCHLOROTHIAZIDE [Concomitant]
  9. ADVAIR DISKUS 100/50 [Concomitant]
  10. ADVAIR DISKUS 100/50 [Concomitant]
     Indication: ASTHMA
  11. SINGULAIR [Concomitant]
     Indication: ASTHMA
  12. PREDNISONE [Concomitant]
  13. TETRACYCLINE [Concomitant]
  14. FLONASE [Concomitant]
  15. ALBUTEROL [Concomitant]
  16. FORTEO [Concomitant]

REACTIONS (4)
  - BONE DISORDER [None]
  - CATARACT [None]
  - SKIN ULCER [None]
  - SKIN ULCER HAEMORRHAGE [None]
